FAERS Safety Report 13790265 (Version 1)
Quarter: 2017Q3

REPORT INFORMATION
  Report Type: Spontaneous
  Country: US (occurrence: US)
  Receive Date: 20170725
  Receipt Date: 20170725
  Transmission Date: 20171127
  Serious: No
  Sender: FDA-Public Use
  Company Number: US-GALDERMA-US16008669

PATIENT
  Age: 73 Year
  Sex: Female
  Weight: 88.43 kg

DRUGS (3)
  1. ADAPALENE (ADAPALENE) CREAM, 0.1% [Suspect]
     Active Substance: ADAPALENE
     Indication: ROSACEA
     Dosage: 0.1%
     Route: 061
     Dates: start: 20161211, end: 20161212
  2. ADAPALENE (ADAPALENE) CREAM, 0.1% [Suspect]
     Active Substance: ADAPALENE
     Indication: ACNE
  3. UNKNOWN ANTIHYPERTENSIVES [Concomitant]
     Active Substance: UNSPECIFIED INGREDIENT
     Indication: HYPERTENSION

REACTIONS (4)
  - Paraesthesia [Unknown]
  - Erythema [Not Recovered/Not Resolved]
  - Skin burning sensation [Not Recovered/Not Resolved]
  - Intentional product use issue [Recovered/Resolved]

NARRATIVE: CASE EVENT DATE: 20161211
